FAERS Safety Report 8477875-2 (Version None)
Quarter: 2012Q2

REPORT INFORMATION
  Report Type: 
  Country: None (occurrence: None)
  Receive Date: 20120629
  Receipt Date: 20120627
  Transmission Date: 20120825
  Serious: Yes (Life-Threatening, Hospitalization, Disabling, Other)
  Sender: FDA-Public Use
  Company Number: IL-B.I. PHARMACEUTICALS,INC./RIDGEFIELD-2012-AP-00486RI

PATIENT
  Age: 75 Year
  Sex: Female
  Weight: 79 kg

DRUGS (15)
  1. PRADAXA [Suspect]
     Dosage: 300 MG
     Route: 048
     Dates: start: 20120417, end: 20120502
  2. CITALOPRAM HYDROBROMIDE [Concomitant]
  3. ALFACALCIDIOL [Concomitant]
  4. ALLOPURINOL [Concomitant]
  5. ROWATINEX [Concomitant]
  6. TRIBEMIN (BETRIVIT) [Concomitant]
  7. COUMADIN [Suspect]
  8. ZOPICLONE [Concomitant]
  9. FAMOTIDINE [Concomitant]
  10. CILAZAPRIL/HYDROCHLOROTHIAZIDE [Concomitant]
  11. METHOTREXATE [Concomitant]
  12. CALCIUM CITRATE+VIT D [Concomitant]
  13. SIMVASTATIN [Concomitant]
  14. ACTONEL [Concomitant]
  15. FOLIC ACID [Concomitant]

REACTIONS (4)
  - PERICARDIAL HAEMORRHAGE [None]
  - PNEUMONIA [None]
  - CHOLECYSTITIS ACUTE [None]
  - CHEST PAIN [None]
